FAERS Safety Report 6158117-X (Version None)
Quarter: 2009Q2

REPORT INFORMATION
  Report Type: 
  Country: None (occurrence: None)
  Receive Date: 20090414
  Receipt Date: 20090414
  Transmission Date: 20091009
  Serious: Yes (Other)
  Sender: FDA-Public Use
  Company Number: None

PATIENT
  Age: 26 Year
  Sex: Female
  Weight: 56.6996 kg

DRUGS (1)
  1. OCELLA 3 - 0.3 BARR [Suspect]
     Indication: CONTRACEPTION
     Dosage: 1 PILL DAILY PO
     Route: 048
     Dates: start: 20090315, end: 20090415

REACTIONS (5)
  - DEPRESSED MOOD [None]
  - FATIGUE [None]
  - INCREASED APPETITE [None]
  - NAUSEA [None]
  - PRODUCT QUALITY ISSUE [None]
